FAERS Safety Report 8190350-8 (Version None)
Quarter: 2012Q1

REPORT INFORMATION
  Report Type: 
  Country: None (occurrence: None)
  Receive Date: 20120307
  Receipt Date: 20120301
  Transmission Date: 20120608
  Serious: Yes (Other)
  Sender: FDA-Public Use
  Company Number: US-PFIZER INC-2012036342

PATIENT
  Sex: Female
  Weight: 75.737 kg

DRUGS (8)
  1. DITROPAN XL [Concomitant]
     Indication: HYPERTONIC BLADDER
     Dosage: 5 MG, 1X/DAY
     Route: 048
  2. CALTRATE 600+D [Concomitant]
     Dosage: UNK, 1X/DAY
  3. ONE-A-DAY [Concomitant]
     Dosage: UNK, 1X/DAY
  4. TRAMADOL [Concomitant]
     Indication: PAIN
     Dosage: 50 MG, AS NEEDED
  5. CHANTIX [Suspect]
     Indication: SMOKING CESSATION THERAPY
     Dosage: 0.5 MG, 1X/DAY
     Route: 048
     Dates: start: 20120208, end: 20120201
  6. CHANTIX [Suspect]
     Dosage: 1 MG, 2X/DAY
     Dates: start: 20120201
  7. TAMOXIFEN CITRATE [Suspect]
     Indication: BREAST CANCER
     Dosage: 20 MG, 1X/DAY
     Dates: end: 20120229
  8. NAPROXEN [Concomitant]
     Indication: PAIN
     Dosage: 375 MG, AS NEEDED

REACTIONS (4)
  - WEIGHT INCREASED [None]
  - NEOPLASM MALIGNANT [None]
  - BLOOD TRIGLYCERIDES INCREASED [None]
  - BLOOD CHOLESTEROL INCREASED [None]
